FAERS Safety Report 5977751-0 (Version None)
Quarter: 2008Q4

REPORT INFORMATION
  Report Type: 
  Country: None (occurrence: None)
  Receive Date: 20081203
  Receipt Date: 20081126
  Transmission Date: 20090506
  Serious: Yes (Other)
  Sender: FDA-Public Use
  Company Number: US-JNJFOC-20081200324

PATIENT
  Age: 30 Year
  Sex: Female
  Weight: 113.4 kg

DRUGS (16)
  1. FLEXERIL [Suspect]
     Indication: ARTHRITIS
     Route: 048
  2. TRAMADOL HCL [Interacting]
     Indication: ARTHRITIS
     Route: 048
  3. LEXAPRO [Interacting]
     Indication: DEPRESSION
     Route: 048
  4. LEXAPRO [Interacting]
     Indication: ANXIETY
     Route: 048
  5. ELAVIL [Suspect]
     Indication: FIBROMYALGIA
     Route: 048
  6. PHENERGAN HCL [Concomitant]
     Indication: NAUSEA
     Route: 048
  7. DARVOCET [Concomitant]
     Indication: PAIN
  8. PROPRANOLOL [Concomitant]
     Indication: HYPERTENSION
     Route: 048
  9. HYDROCHLOROTHIAZIDE [Concomitant]
     Indication: HYPERTENSION
     Route: 048
  10. METFORMIN HCL [Concomitant]
     Indication: POLYCYSTIC OVARIES
     Route: 048
  11. XANAX [Concomitant]
     Indication: ANXIETY
     Route: 048
  12. SYNTHROID [Concomitant]
     Indication: HYPOTHYROIDISM
     Route: 048
  13. TRI-SPRINTEC [Concomitant]
  14. CENTRUM [Concomitant]
  15. WELLBUTRIN [Concomitant]
     Indication: ANXIETY
     Route: 048
  16. WELLBUTRIN [Concomitant]
     Indication: DEPRESSION
     Route: 048

REACTIONS (8)
  - ANOREXIA [None]
  - DRUG INTERACTION [None]
  - EYE MOVEMENT DISORDER [None]
  - NAUSEA [None]
  - SUICIDAL IDEATION [None]
  - TREMOR [None]
  - VISUAL IMPAIRMENT [None]
  - VOMITING [None]
